FAERS Safety Report 7769015-X (Version None)
Quarter: 2011Q3

REPORT INFORMATION
  Report Type: 
  Country: None (occurrence: None)
  Receive Date: 20110922
  Receipt Date: 20110304
  Transmission Date: 20111222
  Serious: No
  Sender: FDA-Public Use
  Company Number: US-ASTRAZENECA-2011SE12352

PATIENT
  Age: 62 Year
  Sex: Female

DRUGS (6)
  1. SEROQUEL [Suspect]
     Indication: BIPOLAR DISORDER
     Route: 048
     Dates: start: 20030101, end: 20110201
  2. SEROQUEL [Suspect]
     Route: 048
     Dates: start: 20110201
  3. LAMICTAL [Concomitant]
  4. SEROQUEL [Suspect]
     Indication: DEPRESSION
     Route: 048
     Dates: start: 20030101, end: 20110201
  5. LITHIUM CARBONATE [Concomitant]
  6. SEROQUEL [Suspect]
     Route: 048
     Dates: start: 20110201

REACTIONS (2)
  - SLEEP DISORDER [None]
  - WRONG TECHNIQUE IN DRUG USAGE PROCESS [None]
